APPROVED DRUG PRODUCT: CLOTRIMAZOLE
Active Ingredient: CLOTRIMAZOLE
Strength: 1%
Dosage Form/Route: SOLUTION;TOPICAL
Application: A074580 | Product #001 | TE Code: AT
Applicant: SUN PHARMA CANADA INC
Approved: Jul 29, 1996 | RLD: No | RS: Yes | Type: RX